FAERS Safety Report 6661252-0 (Version None)
Quarter: 2010Q1

REPORT INFORMATION
  Report Type: 
  Country: None (occurrence: None)
  Receive Date: 20100331
  Receipt Date: 20100323
  Transmission Date: 20100710
  Serious: Yes (Other)
  Sender: FDA-Public Use
  Company Number: CA-JNJCH-2010007309

PATIENT
  Age: 79 Year
  Sex: Male
  Weight: 77.1 kg

DRUGS (2)
  1. ROLAIDS MULTI-SYMPTOM [Suspect]
     Indication: THROAT IRRITATION
     Dosage: TEXT:5 OR 6 DAILY
     Route: 048
  2. CELEBREX [Concomitant]
     Indication: ARTHRITIS
     Dosage: TEXT:UNKNOWN
     Route: 065

REACTIONS (3)
  - HAEMATOCHEZIA [None]
  - RECTAL HAEMORRHAGE [None]
  - SWELLING [None]
